FAERS Safety Report 8770992 (Version 1)
Quarter: 2012Q4

REPORT INFORMATION
  Report Type: 
  Country: US (occurrence: US)
  Receive Date: 20120906
  Receipt Date: 20120906
  Transmission Date: 20130627
  Serious: Yes (Other)
  Sender: FDA-Public Use
  Company Number: US-PFIZER INC-2012219352

PATIENT
  Age: 59 Year
  Sex: Female
  Weight: 87.98 kg

DRUGS (2)
  1. LYRICA [Suspect]
     Indication: FIBROMYALGIA
     Dosage: 100 mg, 2x/day
     Route: 048
     Dates: start: 201102, end: 201102
  2. ALTACE [Concomitant]
     Indication: HYPERTENSION
     Dosage: 10 mg, 2x/day

REACTIONS (3)
  - Hypersensitivity [Recovered/Resolved]
  - Pharyngeal oedema [Recovered/Resolved]
  - Fibromyalgia [Unknown]
